FAERS Safety Report 10141867 (Version 4)
Quarter: 2014Q2

REPORT INFORMATION
  Report Type: Spontaneous
  Country: US (occurrence: US)
  Receive Date: 20140429
  Receipt Date: 20140523
  Transmission Date: 20141212
  Serious: No
  Sender: FDA-Public Use
  Company Number: US-009507513-1202USA00441

PATIENT
  Sex: Male

DRUGS (3)
  1. PROPECIA [Suspect]
     Indication: ANDROGENETIC ALOPECIA
     Dosage: 1 MG, UNK
     Route: 048
     Dates: start: 2005
  2. PROPECIA [Suspect]
     Dosage: 1 MG, UNK
     Route: 048
     Dates: start: 20060507, end: 20090211
  3. PROPECIA [Suspect]
     Dosage: 1 MG, UNK
     Route: 048
     Dates: start: 20090402, end: 20100708

REACTIONS (6)
  - Cognitive disorder [Not Recovered/Not Resolved]
  - Anxiety [Not Recovered/Not Resolved]
  - Anogenital warts [Unknown]
  - Sexual dysfunction [Not Recovered/Not Resolved]
  - Erectile dysfunction [Unknown]
  - Depression [Not Recovered/Not Resolved]
